FAERS Safety Report 20369500 (Version 1)
Quarter: 2022Q1

REPORT INFORMATION
  Report Type: Spontaneous
  Country: BR (occurrence: BR)
  Receive Date: 20220124
  Receipt Date: 20220124
  Transmission Date: 20220423
  Serious: Yes (Other)
  Sender: FDA-Public Use
  Company Number: BR-LUPIN PHARMACEUTICALS INC.-2022-00659

PATIENT
  Age: 4 Year
  Sex: Male

DRUGS (15)
  1. CEFTRIAXONE [Suspect]
     Active Substance: CEFTRIAXONE
     Indication: Antibiotic therapy
     Dosage: UNK
     Route: 065
     Dates: start: 2004
  2. CIPROFLOXACIN [Suspect]
     Active Substance: CIPROFLOXACIN
     Indication: Urinary tract infection bacterial
     Dosage: UNK
     Route: 065
     Dates: start: 2002
  3. CIPROFLOXACIN [Suspect]
     Active Substance: CIPROFLOXACIN
     Indication: Enterobacter infection
     Dosage: 15 MILLIGRAM/KILOGRAM, QD, FOR ENTEROBACTER CLOACAE URINARY INFECTION
     Route: 065
     Dates: start: 20040217
  4. CEPHALEXIN [Suspect]
     Active Substance: CEPHALEXIN
     Indication: Antibiotic therapy
     Dosage: UNK
     Route: 065
     Dates: start: 20040223
  5. DOXORUBICIN [Suspect]
     Active Substance: DOXORUBICIN
     Indication: Nephroblastoma
     Dosage: UNK
     Route: 065
     Dates: start: 20020209, end: 20151116
  6. VINCRISTINE [Suspect]
     Active Substance: VINCRISTINE
     Indication: Nephroblastoma
     Dosage: UNK
     Route: 065
     Dates: start: 20020209, end: 20151116
  7. VINCRISTINE [Suspect]
     Active Substance: VINCRISTINE
     Indication: Respiratory tract neoplasm
  8. CYCLOPHOSPHAMIDE [Suspect]
     Active Substance: CYCLOPHOSPHAMIDE
     Indication: Respiratory tract neoplasm
     Dosage: UNK
     Route: 065
     Dates: start: 20040110, end: 20151116
  9. CEFEPIME [Suspect]
     Active Substance: CEFEPIME HYDROCHLORIDE
     Indication: Lung disorder
     Dosage: UNK
     Route: 065
     Dates: start: 20040415
  10. IRINOTECAN [Suspect]
     Active Substance: IRINOTECAN
     Indication: Respiratory tract neoplasm
     Dosage: UNK
     Route: 065
     Dates: start: 20140723, end: 20151116
  11. TEMOZOLOMIDE [Suspect]
     Active Substance: TEMOZOLOMIDE
     Indication: Respiratory tract neoplasm
     Dosage: UNK
     Route: 065
     Dates: start: 20140723, end: 20151116
  12. BEVACIZUMAB [Suspect]
     Active Substance: BEVACIZUMAB
     Indication: Respiratory tract neoplasm
     Dosage: UNK
     Route: 065
     Dates: start: 20140723, end: 20151116
  13. FLUCONAZOLE [Concomitant]
     Active Substance: FLUCONAZOLE
     Indication: Herpes zoster
     Dosage: FOR HERPES ZOSTER IN THE PERINEAL AREA
     Route: 065
     Dates: start: 2004, end: 2004
  14. FLUCONAZOLE [Concomitant]
     Active Substance: FLUCONAZOLE
     Indication: Fungaemia
     Dosage: UNK, FOR FUNGAEMIA
     Route: 065
     Dates: start: 200405
  15. ENOXAPARIN [Concomitant]
     Active Substance: ENOXAPARIN
     Indication: Antiphospholipid syndrome
     Dosage: 20 MILLIGRAM, QD
     Route: 065
     Dates: start: 2004

REACTIONS (3)
  - Corynebacterium infection [Recovered/Resolved]
  - Device related infection [Recovered/Resolved]
  - Product prescribing issue [Unknown]

NARRATIVE: CASE EVENT DATE: 20040701
